FAERS Safety Report 19980721 (Version 2)
Quarter: 2021Q4

REPORT INFORMATION
  Report Type: Report from Study
  Country: US (occurrence: US)
  Receive Date: 20211021
  Receipt Date: 20211029
  Transmission Date: 20220303
  Serious: Yes (Other)
  Sender: FDA-Public Use
  Company Number: US-TAKEDA-2021TUS064600

PATIENT
  Age: 46 Year
  Sex: Female

DRUGS (26)
  1. LANADELUMAB [Suspect]
     Active Substance: LANADELUMAB
     Indication: Hereditary angioedema
     Dosage: 300 MILLIGRAM, Q2WEEKS
     Route: 065
     Dates: start: 20190227
  2. ALBUTEROL SULFATE [Concomitant]
     Active Substance: ALBUTEROL SULFATE
     Indication: Asthma
     Dosage: 90 MICROGRAM
     Route: 050
     Dates: start: 1984
  3. AZELASTINE. [Concomitant]
     Active Substance: AZELASTINE HYDROCHLORIDE
     Indication: Rhinitis
     Dosage: 137 MICROGRAM
     Route: 045
     Dates: start: 2017
  4. FLUTICASONE FUROATE\VILANTEROL TRIFENATATE [Concomitant]
     Active Substance: FLUTICASONE FUROATE\VILANTEROL TRIFENATATE
     Indication: Asthma
     Dosage: 1 DOSAGE FORM
     Route: 055
     Dates: start: 201711
  5. EPINEPHRINE [Concomitant]
     Active Substance: EPINEPHRINE
     Indication: Anaphylaxis prophylaxis
     Dosage: 0.3 MILLIGRAM
     Route: 030
     Dates: start: 20171009
  6. Levocetrizine hydrochloride [Concomitant]
     Indication: Rhinitis
     Dosage: 5 MILLIGRAM
     Route: 048
     Dates: start: 2014
  7. MONTELUKAST [Concomitant]
     Active Substance: MONTELUKAST SODIUM
     Indication: Asthma
     Dosage: 10 MILLIGRAM
     Route: 048
     Dates: start: 2014
  8. AMITRIPTYLINE [Concomitant]
     Active Substance: AMITRIPTYLINE
     Indication: Sleep disorder
     Dosage: 25 MILLIGRAM
     Route: 048
     Dates: start: 201809
  9. MIDODRINE [Concomitant]
     Active Substance: MIDODRINE
     Indication: Autonomic nervous system imbalance
     Dosage: 10 MICROGRAM
     Route: 048
     Dates: start: 201811, end: 201909
  10. BENRALIZUMAB [Concomitant]
     Active Substance: BENRALIZUMAB
     Indication: Asthma
     Dosage: 30 MILLIGRAM
     Route: 058
     Dates: start: 201803
  11. FLUTICASONE FUROATE [Concomitant]
     Active Substance: FLUTICASONE FUROATE
     Indication: Rhinitis
     Dosage: 1 DOSAGE FORM
     Dates: start: 2014
  12. MINERALS\VITAMINS [Concomitant]
     Active Substance: MINERALS\VITAMINS
     Dosage: 1 DOSAGE FORM
     Route: 048
     Dates: start: 201904
  13. OMEGA-3 FATTY ACIDS [Concomitant]
     Active Substance: OMEGA-3 FATTY ACIDS
     Dosage: 1 DOSAGE FORM
     Route: 048
     Dates: start: 201904
  14. ALBUTEROL\IPRATROPIUM [Concomitant]
     Active Substance: ALBUTEROL\IPRATROPIUM
     Indication: Asthma
     Dosage: 3 MILLILITER
     Route: 055
     Dates: start: 201404
  15. CALCIUM [Concomitant]
     Active Substance: CALCIUM
     Indication: Bone density decreased
     Dosage: 1500 MILLIGRAM
     Route: 048
     Dates: start: 201911
  16. VITAMIN D [Concomitant]
     Active Substance: VITAMIN D NOS
     Indication: Bone density decreased
     Dosage: 2000 INTERNATIONAL UNIT
     Route: 048
     Dates: start: 201911
  17. PEPCID AC [Concomitant]
     Active Substance: FAMOTIDINE
     Indication: Gastrooesophageal reflux disease
     Dosage: 20 MILLIGRAM
     Route: 048
     Dates: start: 20160607
  18. NORTHERA [Concomitant]
     Active Substance: DROXIDOPA
     Indication: Autonomic nervous system imbalance
     Dosage: 600 MILLIGRAM
     Route: 048
     Dates: start: 201909
  19. SODIUM CHLORIDE [Concomitant]
     Active Substance: SODIUM CHLORIDE
     Indication: Rhinitis allergic
     Dosage: 1 DOSAGE FORM
     Dates: start: 201912
  20. DOXYCYCLINE [Concomitant]
     Active Substance: DOXYCYCLINE
     Indication: Pneumonia
     Dosage: 100 MILLIGRAM
     Dates: start: 20210719, end: 20210725
  21. CEFTRIAXONE [Concomitant]
     Active Substance: CEFTRIAXONE
     Indication: Pneumonia
     Dosage: 2 GRAM
     Route: 030
     Dates: start: 20210723, end: 20210723
  22. AZITHROMYCIN ANHYDROUS [Concomitant]
     Active Substance: AZITHROMYCIN ANHYDROUS
     Indication: Pneumonia
     Dosage: 250 MILLIGRAM
     Dates: start: 20210723, end: 20210723
  23. GUAIFENESIN [Concomitant]
     Active Substance: GUAIFENESIN
     Indication: Pneumonia
     Dosage: 1 DOSAGE FORM
     Route: 048
     Dates: start: 20210709, end: 20210820
  24. PREDNISONE [Concomitant]
     Active Substance: PREDNISONE
     Indication: Pneumonia
     Dosage: 50 MILLIGRAM
     Route: 048
     Dates: start: 20210723, end: 20210727
  25. Sulfamethoxazole;Trimipramine [Concomitant]
     Indication: Staphylococcal infection
     Dosage: 1 DOSAGE FORM
     Route: 048
     Dates: start: 20201102, end: 20201116
  26. KETOTIFEN [Concomitant]
     Active Substance: KETOTIFEN
     Indication: Rhinitis allergic
     Dosage: 1 DOSAGE FORM
     Dates: start: 201912

REACTIONS (1)
  - Pneumonia [Recovered/Resolved]

NARRATIVE: CASE EVENT DATE: 20210709
